FAERS Safety Report 4568315-4 (Version None)
Quarter: 2005Q1

REPORT INFORMATION
  Report Type: 
  Country: None (occurrence: None)
  Receive Date: 20050131
  Receipt Date: 20050117
  Transmission Date: 20050727
  Serious: Yes (Hospitalization)
  Sender: FDA-Public Use
  Company Number: 2005013837

PATIENT
  Age: 53 Year
  Sex: Male
  Weight: 91 kg

DRUGS (1)
  1. FELDENE [Suspect]
     Indication: INTERVERTEBRAL DISC PROTRUSION
     Dosage: 20 MG (DAILY) , ORAL
     Route: 048
     Dates: end: 20041219

REACTIONS (3)
  - ANAEMIA [None]
  - DRUG EFFECT DECREASED [None]
  - GASTRIC ULCER HAEMORRHAGE [None]
